FAERS Safety Report 16851803 (Version 1)
Quarter: 2019Q3

REPORT INFORMATION
  Report Type: Spontaneous
  Country: US (occurrence: US)
  Receive Date: 20190925
  Receipt Date: 20190925
  Transmission Date: 20191005
  Serious: Yes (Hospitalization, Other)
  Sender: FDA-Public Use
  Company Number: US-ASTRAZENECA-2019SF33363

PATIENT
  Age: 73 Year
  Sex: Male

DRUGS (2)
  1. ALBUTEROL. [Concomitant]
     Active Substance: ALBUTEROL
  2. SYMBICORT [Suspect]
     Active Substance: BUDESONIDE\FORMOTEROL FUMARATE DIHYDRATE
     Indication: CHRONIC OBSTRUCTIVE PULMONARY DISEASE
     Dosage: 160-4.5 MCG, 2 PUFFS BID
     Route: 055
     Dates: start: 20190601

REACTIONS (7)
  - Vascular occlusion [Recovered/Resolved]
  - Dyspnoea [Not Recovered/Not Resolved]
  - Device failure [Unknown]
  - Haemoglobin decreased [Not Recovered/Not Resolved]
  - Device malfunction [Unknown]
  - Product dose omission [Not Recovered/Not Resolved]
  - Poor quality device used [Not Recovered/Not Resolved]

NARRATIVE: CASE EVENT DATE: 2019
